FAERS Safety Report 13890258 (Version 1)
Quarter: 2017Q3

REPORT INFORMATION
  Report Type: Spontaneous
  Country: US (occurrence: US)
  Receive Date: 20170816
  Receipt Date: 20170816
  Transmission Date: 20171127
  Serious: Yes (Life-Threatening, Hospitalization, Disabling, Other)
  Sender: FDA-Public Use
  Company Number: None

PATIENT
  Age: 64 Year
  Sex: Male
  Weight: 67.5 kg

DRUGS (4)
  1. CIPRO [Suspect]
     Active Substance: CIPROFLOXACIN HYDROCHLORIDE
     Indication: URINARY TRACT INFECTION
  2. LEVAQUIN [Suspect]
     Active Substance: LEVOFLOXACIN
     Indication: URINARY TRACT INFECTION
  3. LEVAQUIN [Suspect]
     Active Substance: LEVOFLOXACIN
     Indication: NEPHROLITHIASIS
  4. TYLENOL [Concomitant]
     Active Substance: ACETAMINOPHEN

REACTIONS (23)
  - Dyspnoea [None]
  - Burning sensation [None]
  - Stevens-Johnson syndrome [None]
  - Headache [None]
  - Urinary tract infection [None]
  - Pain [None]
  - Nephrolithiasis [None]
  - Skin exfoliation [None]
  - Toothache [None]
  - Skin discolouration [None]
  - Aneurysm [None]
  - Arthritis [None]
  - Tendon rupture [None]
  - Oral mucosal exfoliation [None]
  - Tooth fracture [None]
  - Tooth discolouration [None]
  - Intervertebral disc degeneration [None]
  - Eye pain [None]
  - Facial pain [None]
  - Pain in extremity [None]
  - Malaise [None]
  - Insomnia [None]
  - Toxic epidermal necrolysis [None]

NARRATIVE: CASE EVENT DATE: 20121121
